FAERS Safety Report 24705672 (Version 1)
Quarter: 2024Q4

REPORT INFORMATION
  Report Type: Spontaneous
  Country: US (occurrence: US)
  Receive Date: 20241206
  Receipt Date: 20241206
  Transmission Date: 20250115
  Serious: Yes (Hospitalization, Other)
  Sender: RANBAXY
  Company Number: US-SUN PHARMACEUTICAL INDUSTRIES LTD-2024RR-483120

PATIENT
  Age: 38 Year
  Sex: Female

DRUGS (8)
  1. MIDAZOLAM [Suspect]
     Active Substance: MIDAZOLAM
     Indication: Status epilepticus
     Dosage: 1.6 MILLIGRAM/KILOGRAM/HOUR
     Route: 042
  2. LORAZEPAM [Suspect]
     Active Substance: LORAZEPAM
     Indication: Status epilepticus
     Dosage: 4 MILLIGRAM
     Route: 065
  3. LEVETIRACETAM [Suspect]
     Active Substance: LEVETIRACETAM
     Indication: Status epilepticus
     Dosage: 60 MILLIGRAM/KILOGRAM
     Route: 065
  4. LACOSAMIDE [Suspect]
     Active Substance: LACOSAMIDE
     Indication: Status epilepticus
     Dosage: 400 MILLIGRAM
     Route: 065
  5. PROPOFOL [Suspect]
     Active Substance: PROPOFOL
     Indication: Status epilepticus
     Dosage: 60 MICROGRAM/KILOGRAM/HOUR
     Route: 058
  6. FOSPHENYTOIN [Suspect]
     Active Substance: FOSPHENYTOIN
     Indication: Status epilepticus
     Dosage: 20 MILLIGRAM/KILOGRAM
     Route: 040
  7. ZONISAMIDE [Suspect]
     Active Substance: ZONISAMIDE
     Indication: Status epilepticus
     Dosage: 600 MILLIGRAM IN 2 DOSES 6 HOURS APART
     Route: 065
  8. KETAMINE [Suspect]
     Active Substance: KETAMINE
     Indication: Status epilepticus
     Dosage: 4 MILLIGRAM/KILOGRAM/HOUR
     Route: 040

REACTIONS (3)
  - Disease progression [Recovered/Resolved]
  - Drug resistance [Recovered/Resolved]
  - Drug ineffective [Recovered/Resolved]
